FAERS Safety Report 24927312 (Version 2)
Quarter: 2025Q1

REPORT INFORMATION
  Report Type: Report from Study
  Country: US (occurrence: US)
  Receive Date: 20250205
  Receipt Date: 20250217
  Transmission Date: 20250409
  Serious: No
  Sender: SANDOZ
  Company Number: US-SANDOZ-SDZ2025US005843

PATIENT
  Age: 50 Year
  Sex: Female

DRUGS (2)
  1. HYRIMOZ [Suspect]
     Active Substance: ADALIMUMAB-ADAZ
     Indication: Ankylosing spondylitis
     Dosage: 40 MG, Q2W, (OTHER DOSAGE: 40/0.4MG/ML)L)
     Route: 058
     Dates: start: 20250128
  2. HYRIMOZ [Suspect]
     Active Substance: ADALIMUMAB-ADAZ
     Indication: Ankylosing spondylitis
     Dosage: 40 MG, Q2W, (OTHER DOSAGE: 40/0.4MG/ML)L)
     Route: 058
     Dates: start: 20250128

REACTIONS (3)
  - Dysgeusia [Unknown]
  - Circumstance or information capable of leading to medication error [Unknown]
  - Device issue [Unknown]

NARRATIVE: CASE EVENT DATE: 20250128
